FAERS Safety Report 12781877 (Version 1)
Quarter: 2016Q3

REPORT INFORMATION
  Report Type: Spontaneous
  Country: US (occurrence: US)
  Receive Date: 20160926
  Receipt Date: 20160926
  Transmission Date: 20161109
  Serious: No
  Sender: FDA-Public Use
  Company Number: US-ASTRAZENECA-2016SE97293

PATIENT
  Age: 772 Month
  Sex: Female
  Weight: 65.8 kg

DRUGS (2)
  1. MOVANTIK [Suspect]
     Active Substance: NALOXEGOL OXALATE
     Indication: CONSTIPATION
     Route: 048
     Dates: start: 201607
  2. OPIOID [Concomitant]
     Active Substance: UNSPECIFIED INGREDIENT
     Dosage: UNKNOWN
     Route: 065

REACTIONS (5)
  - Gastrointestinal disorder [Unknown]
  - Drug effect delayed [Unknown]
  - Nerve compression [Unknown]
  - Drug dose omission [Unknown]
  - Weight increased [Unknown]

NARRATIVE: CASE EVENT DATE: 201607
